FAERS Safety Report 7006911-5 (Version None)
Quarter: 2010Q3

REPORT INFORMATION
  Report Type: 
  Country: None (occurrence: None)
  Receive Date: 20100922
  Receipt Date: 20100913
  Transmission Date: 20110219
  Serious: No
  Sender: FDA-Public Use
  Company Number: US-JNJFOC-20100904651

PATIENT
  Sex: Female
  Weight: 102.06 kg

DRUGS (2)
  1. FENTANYL CITRATE [Suspect]
     Indication: PAIN IN EXTREMITY
     Dosage: NDC#: 0781-7241-55
     Route: 062
  2. FENTANYL CITRATE [Suspect]
     Indication: BACK PAIN
     Dosage: NDC#: 0781-7241-55
     Route: 062

REACTIONS (6)
  - DRUG INEFFECTIVE [None]
  - PAIN [None]
  - PRODUCT ADHESION ISSUE [None]
  - PRODUCT QUALITY ISSUE [None]
  - TREATMENT NONCOMPLIANCE [None]
  - WRONG TECHNIQUE IN DRUG USAGE PROCESS [None]
